FAERS Safety Report 9349293 (Version 3)
Quarter: 2014Q2

REPORT INFORMATION
  Report Type: Spontaneous
  Country: US (occurrence: US)
  Receive Date: 20130614
  Receipt Date: 20140430
  Transmission Date: 20141212
  Serious: Yes (Other)
  Sender: FDA-Public Use
  Company Number: US-B.I. PHARMACEUTICALS,INC./RIDGEFIELD-2013-BI-16398BP

PATIENT
  Age: 77 Year
  Sex: Female
  Weight: 63.5 kg

DRUGS (9)
  1. PRADAXA [Suspect]
     Indication: ATRIAL FIBRILLATION
     Dosage: 300 MG
     Route: 048
     Dates: start: 20120207, end: 20120306
  2. ASPIRIN [Concomitant]
     Dosage: 162 MG
     Route: 065
  3. ZOLOFT [Concomitant]
     Dosage: 50 MG
     Route: 065
  4. FISH OIL [Concomitant]
     Dosage: 1000 MG
     Route: 065
  5. COQ10 [Concomitant]
     Dosage: 200 MG
     Route: 065
  6. VITAMIN D [Concomitant]
     Dosage: 2000 U
     Route: 065
  7. DEXILANT [Concomitant]
     Dosage: 30 MG
     Route: 065
     Dates: start: 2010
  8. PROPAFENONE SR [Concomitant]
     Dosage: 650 MG
     Route: 065
  9. MULTIVITAMIN [Concomitant]
     Route: 065

REACTIONS (1)
  - Gastrointestinal haemorrhage [Unknown]
